FAERS Safety Report 9812526 (Version 2)
Quarter: 2014Q1

REPORT INFORMATION
  Report Type: Report from Study
  Country: FR (occurrence: FR)
  Receive Date: 20140113
  Receipt Date: 20140129
  Transmission Date: 20141002
  Serious: Yes (Other)
  Sender: FDA-Public Use
  Company Number: FR-ROCHE-1329701

PATIENT
  Sex: Female

DRUGS (26)
  1. RITUXIMAB [Suspect]
     Indication: RHEUMATOID ARTHRITIS
     Dosage: DAY 1
     Route: 041
     Dates: start: 20061012
  2. RITUXIMAB [Suspect]
     Dosage: DAY 15
     Route: 065
     Dates: start: 20061026
  3. RITUXIMAB [Suspect]
     Route: 065
     Dates: start: 20070423
  4. RITUXIMAB [Suspect]
     Route: 065
     Dates: start: 20071126
  5. RITUXIMAB [Suspect]
     Route: 065
     Dates: start: 20080311
  6. RITUXIMAB [Suspect]
     Route: 065
     Dates: start: 20081008
  7. RITUXIMAB [Suspect]
     Dosage: DAY 1
     Route: 065
     Dates: start: 20100906
  8. RITUXIMAB [Suspect]
     Dosage: DAY 15
     Route: 065
     Dates: start: 20100920
  9. RITUXIMAB [Suspect]
     Dosage: DAY 1
     Route: 065
     Dates: start: 20121015
  10. RITUXIMAB [Suspect]
     Dosage: DAY 15
     Route: 065
     Dates: start: 20121029
  11. RITUXIMAB [Suspect]
     Dosage: DAY 1
     Route: 065
     Dates: start: 20130604
  12. RITUXIMAB [Suspect]
     Dosage: DAY 15
     Route: 065
     Dates: start: 20130618
  13. METHOTREXATE [Concomitant]
     Indication: RHEUMATOID ARTHRITIS
     Route: 065
  14. METHOTREXATE [Concomitant]
     Route: 065
     Dates: start: 20070423
  15. METHOTREXATE [Concomitant]
     Route: 065
     Dates: start: 20071126
  16. METHOTREXATE [Concomitant]
     Route: 065
     Dates: start: 20080311
  17. METHOTREXATE [Concomitant]
     Route: 065
     Dates: start: 20081008
  18. METHOTREXATE [Concomitant]
     Route: 065
     Dates: start: 20100906
  19. METHOTREXATE [Concomitant]
     Route: 065
     Dates: start: 20100920
  20. METHOTREXATE [Concomitant]
     Route: 065
     Dates: start: 20121029
  21. METHOTREXATE [Concomitant]
     Route: 065
     Dates: start: 20130618
  22. CORTANCYL [Concomitant]
     Route: 065
     Dates: start: 20070423
  23. CORTANCYL [Concomitant]
     Route: 065
     Dates: start: 20071126
  24. CORTANCYL [Concomitant]
     Route: 065
     Dates: start: 20100920
  25. CORTANCYL [Concomitant]
     Route: 065
     Dates: start: 20121029
  26. CORTANCYL [Concomitant]
     Route: 065
     Dates: start: 20130618

REACTIONS (7)
  - Epilepsy [Recovered/Resolved]
  - Embolism [Unknown]
  - Headache [Recovered/Resolved]
  - Asthenia [Recovered/Resolved]
  - Gingivitis [Unknown]
  - Osteoporosis [Not Recovered/Not Resolved]
  - Effusion [Recovered/Resolved]
